FAERS Safety Report 6355914-2 (Version None)
Quarter: 2009Q3

REPORT INFORMATION
  Report Type: 
  Country: None (occurrence: None)
  Receive Date: 20090914
  Receipt Date: 20090914
  Transmission Date: 20100115
  Serious: Yes (Hospitalization, Disabling)
  Sender: FDA-Public Use
  Company Number: None

PATIENT
  Age: 30 Year
  Sex: Female
  Weight: 63.05 kg

DRUGS (1)
  1. MIRENA [Suspect]

REACTIONS (4)
  - ALOPECIA [None]
  - IUD MIGRATION [None]
  - MIGRAINE [None]
  - UTERINE RUPTURE [None]
